FAERS Safety Report 9333299 (Version 2)
Quarter: 2013Q2

REPORT INFORMATION
  Report Type: Spontaneous
  Country: PK (occurrence: PK)
  Receive Date: 20130606
  Receipt Date: 20130612
  Transmission Date: 20140414
  Serious: Yes (Other)
  Sender: FDA-Public Use
  Company Number: PHHY2013PK057369

PATIENT
  Age: 28 Year
  Sex: Female
  Weight: 54 kg

DRUGS (1)
  1. TEGRETOL [Suspect]
     Dosage: 600 MG, DAILY
     Route: 048
     Dates: start: 201303, end: 201304

REACTIONS (3)
  - Abortion spontaneous [Unknown]
  - Rash [Unknown]
  - Maternal exposure during pregnancy [Unknown]
